FAERS Safety Report 6945329-8 (Version None)
Quarter: 2010Q3

REPORT INFORMATION
  Report Type: 
  Country: None (occurrence: None)
  Receive Date: 20100827
  Receipt Date: 20100813
  Transmission Date: 20110219
  Serious: Yes (Hospitalization)
  Sender: FDA-Public Use
  Company Number: CH-ROCHE-579584

PATIENT
  Sex: Female

DRUGS (18)
  1. BONIVA [Suspect]
     Route: 048
     Dates: start: 20051001
  2. FOSAMAX [Suspect]
     Route: 048
     Dates: start: 19950101, end: 20051001
  3. PREDNISONE [Suspect]
     Route: 048
  4. NEXIUM [Suspect]
     Route: 048
  5. CALCIMAGON [Concomitant]
     Indication: OSTEOPOROSIS
     Route: 048
  6. MS CONTIN [Concomitant]
     Indication: PAIN
     Dosage: STRENGTH 30 MG
     Route: 048
  7. ACETAMINOPHEN [Concomitant]
     Indication: PAIN
     Route: 048
  8. SORTIS [Concomitant]
     Route: 048
  9. CITALOPRAM HYDROBROMIDE [Concomitant]
     Route: 048
  10. DALMADORM [Concomitant]
     Route: 048
  11. XANAX [Concomitant]
     Route: 048
  12. SINGULAIR [Concomitant]
     Indication: ASTHMA
     Route: 048
  13. SERETIDE [Concomitant]
     Indication: ASTHMA
     Route: 055
  14. DOSPIR [Concomitant]
     Indication: ASTHMA
  15. SPIRIVA [Concomitant]
  16. NULYTELY [Concomitant]
     Indication: CONSTIPATION
     Route: 048
  17. AXOTIDE [Concomitant]
     Indication: ASTHMA
     Route: 055
  18. CALCIUM [Concomitant]

REACTIONS (1)
  - FEMUR FRACTURE [None]
